FAERS Safety Report 14205940 (Version 1)
Quarter: 2017Q4

REPORT INFORMATION
  Report Type: Spontaneous
  Country: SI (occurrence: SI)
  Receive Date: 20171120
  Receipt Date: 20171120
  Transmission Date: 20180321
  Serious: Yes (Hospitalization, Other)
  Sender: FDA-Public Use
  Company Number: SI-JNJFOC-20171121355

PATIENT
  Age: 72 Year
  Sex: Male

DRUGS (6)
  1. XARELTO [Suspect]
     Active Substance: RIVAROXABAN
     Indication: ATRIAL FIBRILLATION
     Route: 048
  2. PERINDOPRIL [Concomitant]
     Active Substance: PERINDOPRIL
     Route: 065
  3. ROSUVASTATIN. [Concomitant]
     Active Substance: ROSUVASTATIN
     Route: 065
  4. INDAPAMIDE. [Concomitant]
     Active Substance: INDAPAMIDE
     Route: 065
  5. METFORMIN [Concomitant]
     Active Substance: METFORMIN HYDROCHLORIDE
     Route: 065
  6. BISOPROLOL [Concomitant]
     Active Substance: BISOPROLOL
     Route: 065

REACTIONS (16)
  - Respiratory distress [Unknown]
  - Dyspnoea [Unknown]
  - Hypertrophic cardiomyopathy [Unknown]
  - Hypertensive cardiomyopathy [Unknown]
  - Blood pressure increased [Unknown]
  - Pleural effusion [Unknown]
  - Oxygen saturation decreased [Unknown]
  - Pulmonary oedema [Unknown]
  - Condition aggravated [Unknown]
  - Chest discomfort [Unknown]
  - Fatigue [Unknown]
  - Tachypnoea [Unknown]
  - Left ventricular end-diastolic pressure increased [Unknown]
  - Asphyxia [Unknown]
  - Heart rate increased [Unknown]
  - Cardiac failure [Unknown]
